FAERS Safety Report 21562391 (Version 1)
Quarter: 2022Q4

REPORT INFORMATION
  Report Type: Spontaneous
  Country: None (occurrence: BG)
  Receive Date: 20221107
  Receipt Date: 20221107
  Transmission Date: 20230113
  Serious: Yes (Death)
  Sender: FDA-Public Use
  Company Number: BG-B.Braun Medical Inc.-2134602

PATIENT
  Age: 56 Year
  Sex: Female

DRUGS (9)
  1. METRONIDAZOLE [Suspect]
     Active Substance: METRONIDAZOLE
  2. HUMAN IMMUNOGLOBULIN G [Concomitant]
     Active Substance: HUMAN IMMUNOGLOBULIN G
  3. TACROLIMUS [Suspect]
     Active Substance: TACROLIMUS
  4. VALGANCICLOVIR [Suspect]
     Active Substance: VALGANCICLOVIR
  5. PREDNISOLONE [Suspect]
     Active Substance: PREDNISOLONE
  6. RITUXIMAB [Suspect]
     Active Substance: RITUXIMAB
  7. MYCOPHENOLATE MOFETIL [Suspect]
     Active Substance: MYCOPHENOLATE MOFETIL
  8. AMOXICILLIN\CLAVULANIC ACID [Suspect]
     Active Substance: AMOXICILLIN\CLAVULANIC ACID
  9. METHYLPREDNISOLONE [Suspect]
     Active Substance: METHYLPREDNISOLONE

REACTIONS (6)
  - Drug ineffective [Fatal]
  - Anuria [Fatal]
  - Pancytopenia [Fatal]
  - Bone marrow failure [Fatal]
  - Sepsis [Fatal]
  - Septic shock [Fatal]
